FAERS Safety Report 24353675 (Version 1)
Quarter: 2024Q3

REPORT INFORMATION
  Report Type: Spontaneous
  Country: US (occurrence: None)
  Receive Date: 20240923
  Receipt Date: 20240923
  Transmission Date: 20241017
  Serious: Yes (Hospitalization)
  Sender: Public
  Company Number: None

PATIENT
  Sex: Female

DRUGS (1)
  1. ICATIBANT ACETATE [Suspect]
     Active Substance: ICATIBANT ACETATE
     Indication: Immune system disorder
     Dosage: 30MG/3ML AS NEEDED SUBCUTANEOUS
     Route: 058
     Dates: start: 202402

REACTIONS (4)
  - Surgery [None]
  - Procedural complication [None]
  - Immune system disorder [None]
  - Condition aggravated [None]
